FAERS Safety Report 20573853 (Version 1)
Quarter: 2022Q1

REPORT INFORMATION
  Report Type: Report from Study
  Country: US (occurrence: US)
  Receive Date: 20220309
  Receipt Date: 20220309
  Transmission Date: 20220423
  Serious: Yes (Other)
  Sender: FDA-Public Use
  Company Number: US-CELGENE-USA-20220301903

PATIENT
  Age: 85 Year
  Sex: Female
  Weight: 74.910 kg

DRUGS (2)
  1. REVLIMID [Suspect]
     Active Substance: LENALIDOMIDE
     Indication: Plasma cell myeloma
     Dosage: 10 MILLIGRAM
     Route: 048
     Dates: start: 202001
  2. CEFTIN [Concomitant]
     Active Substance: CEFUROXIME AXETIL
     Indication: Urinary tract infection
     Route: 065

REACTIONS (7)
  - Delirium [Unknown]
  - COVID-19 [Unknown]
  - Drug intolerance [Unknown]
  - Poor quality sleep [Unknown]
  - Peripheral swelling [Unknown]
  - Blood pressure increased [Unknown]
  - Depression [Unknown]

NARRATIVE: CASE EVENT DATE: 20211201
